FAERS Safety Report 4594646-8 (Version None)
Quarter: 2005Q1

REPORT INFORMATION
  Report Type: 
  Country: None (occurrence: None)
  Receive Date: 20050301
  Receipt Date: 20041118
  Transmission Date: 20050727
  Serious: No
  Sender: FDA-Public Use
  Company Number: US-BRISTOL-MYERS SQUIBB COMPANY-12769709

PATIENT
  Age: 51 Year
  Sex: Male
  Weight: 107 kg

DRUGS (5)
  1. ERBITUX [Suspect]
     Indication: COLON CANCER
     Route: 042
     Dates: start: 20041021, end: 20041021
  2. ANZEMET [Concomitant]
     Indication: PREMEDICATION
     Route: 048
     Dates: start: 20041021, end: 20041021
  3. BENADRYL [Concomitant]
     Indication: PREMEDICATION
     Route: 048
     Dates: start: 20041021, end: 20041021
  4. DECADRON [Concomitant]
     Indication: PREMEDICATION
     Route: 042
     Dates: start: 20041021, end: 20041021
  5. CAMPTOSAR [Concomitant]
     Dates: start: 20041021, end: 20041021

REACTIONS (2)
  - RASH [None]
  - STOMATITIS [None]
